FAERS Safety Report 8522055-5 (Version None)
Quarter: 2012Q3

REPORT INFORMATION
  Report Type: 
  Country: None (occurrence: None)
  Receive Date: 20120719
  Receipt Date: 20120717
  Transmission Date: 20120928
  Serious: Yes (Life-Threatening, Hospitalization, Other)
  Sender: FDA-Public Use
  Company Number: PHHY2012NL019335

PATIENT
  Sex: Female
  Weight: 65 kg

DRUGS (3)
  1. METOPROLOL SUCCINATE [Concomitant]
     Dosage: UNK UKN, UNK
  2. TASIGNA [Interacting]
     Indication: CHRONIC MYELOID LEUKAEMIA
     Dosage: 200 MG BID
     Dates: start: 20090828
  3. PRAVASTATIN [Suspect]
     Dosage: UNK UKN, UNK

REACTIONS (3)
  - ARTERIOSCLEROSIS [None]
  - CORONARY ARTERY DISEASE [None]
  - DRUG INTERACTION [None]
